FAERS Safety Report 8473665 (Version 11)
Quarter: 2012Q4

REPORT INFORMATION
  Report Type: 
  Country: US (occurrence: US)
  Receive Date: 20120323
  Receipt Date: 20121026
  Transmission Date: 20130627
  Serious: Yes (Hospitalization, Other)
  Sender: FDA-Public Use
  Company Number: US-PFIZER INC-2012071099

PATIENT
  Age: 69 Year
  Sex: Female
  Weight: 93 kg

DRUGS (5)
  1. SUTENT [Suspect]
     Indication: RENAL CANCER
     Dosage: UNK
     Route: 048
     Dates: start: 201201, end: 20120821
  2. SUTENT [Suspect]
     Dosage: 50 mg, 1x/day, 4 weeks on/2 weeks off
     Route: 048
     Dates: start: 20120201
  3. SUTENT [Suspect]
     Dosage: 37.5 mg, UNK
     Dates: end: 20120821
  4. TYLENOL [Concomitant]
     Indication: PAIN
     Dosage: UNK
  5. LOSARTAN POTASSIUM [Concomitant]
     Indication: HYPERTENSION
     Dosage: 25 mg, 1x/day

REACTIONS (24)
  - Hypertension [Recovered/Resolved]
  - Headache [Recovered/Resolved]
  - Platelet count decreased [Unknown]
  - Disease progression [Unknown]
  - Renal cell carcinoma [Unknown]
  - Oral pain [Unknown]
  - Oral fungal infection [Unknown]
  - Vaginal infection [Unknown]
  - Nausea [Unknown]
  - Asthenia [Unknown]
  - Fatigue [Not Recovered/Not Resolved]
  - Chromaturia [Not Recovered/Not Resolved]
  - Epigastric discomfort [Not Recovered/Not Resolved]
  - Mucosal inflammation [Not Recovered/Not Resolved]
  - Depression [Not Recovered/Not Resolved]
  - Decreased appetite [Not Recovered/Not Resolved]
  - Vulvovaginal mycotic infection [Unknown]
  - Stomatitis [Unknown]
  - Dysgeusia [Not Recovered/Not Resolved]
  - Swelling face [Unknown]
  - Constipation [Not Recovered/Not Resolved]
  - Thrombocytopenia [Unknown]
  - Oedema peripheral [Unknown]
  - Blood creatinine increased [Unknown]
